FAERS Safety Report 4506496-9 (Version None)
Quarter: 2004Q4

REPORT INFORMATION
  Report Type: 
  Country: None (occurrence: None)
  Receive Date: 20041122
  Receipt Date: 20041111
  Transmission Date: 20050328
  Serious: Yes (Hospitalization)
  Sender: FDA-Public Use
  Company Number: US-ABBOTT-04P-163-0280260-00

PATIENT
  Sex: Male
  Weight: 61.29 kg

DRUGS (4)
  1. DEPAKOTE ER [Suspect]
     Indication: AFFECT LABILITY
     Route: 048
     Dates: start: 20040601
  2. DEPAKOTE ER [Suspect]
     Indication: ABNORMAL BEHAVIOUR
  3. FLURAZEPAM HCL [Concomitant]
     Indication: AFFECT LABILITY
     Route: 048
  4. FLURAZEPAM HCL [Concomitant]
     Indication: AGGRESSION

REACTIONS (1)
  - BLOOD CREATINE PHOSPHOKINASE INCREASED [None]
